FAERS Safety Report 20063497 (Version 2)
Quarter: 2022Q1

REPORT INFORMATION
  Report Type: Spontaneous
  Country: US (occurrence: US)
  Receive Date: 20211112
  Receipt Date: 20220331
  Transmission Date: 20220423
  Serious: No
  Sender: FDA-Public Use
  Company Number: US-PFIZER INC-202101403168

PATIENT
  Age: 67 Year
  Sex: Female
  Weight: 73.48 kg

DRUGS (2)
  1. PREMARIN [Suspect]
     Active Substance: ESTROGENS, CONJUGATED
     Indication: Vulvovaginal dryness
     Dosage: 1 G, 2X/WEEK (APPLY 1 GRAM VAGINALLY TWICE A WEEK)
     Route: 067
  2. PREMARIN [Suspect]
     Active Substance: ESTROGENS, CONJUGATED
     Indication: Endometrial cancer

REACTIONS (5)
  - Visual impairment [Unknown]
  - Abdominal pain upper [Unknown]
  - Disease recurrence [Unknown]
  - Off label use [Unknown]
  - Off label use [Unknown]
